FAERS Safety Report 5101225-2 (Version None)
Quarter: 2006Q3

REPORT INFORMATION
  Report Type: 
  Country: None (occurrence: None)
  Receive Date: 20060911
  Receipt Date: 20060905
  Transmission Date: 20061208
  Serious: Yes (Other)
  Sender: FDA-Public Use
  Company Number: 2006UW17383

PATIENT
  Age: 78 Year
  Sex: Male
  Weight: 72.6 kg

DRUGS (6)
  1. CASODEX [Suspect]
     Route: 048
     Dates: start: 20050901
  2. CASODEX [Suspect]
     Indication: DISEASE PROGRESSION
     Route: 048
     Dates: start: 20050901
  3. NEXIUM [Concomitant]
     Route: 048
  4. ZOVIRAX [Concomitant]
  5. ASPIRIN [Concomitant]
  6. VITAMINS [Concomitant]

REACTIONS (4)
  - ARRHYTHMIA [None]
  - DIZZINESS [None]
  - FLUSHING [None]
  - HEART RATE INCREASED [None]
